FAERS Safety Report 7572640-2 (Version None)
Quarter: 2011Q2

REPORT INFORMATION
  Report Type: 
  Country: None (occurrence: None)
  Receive Date: 20110627
  Receipt Date: 20110620
  Transmission Date: 20111010
  Serious: No
  Sender: FDA-Public Use
  Company Number: US-BIOGENIDEC-2011BI022632

PATIENT
  Age: 41 Year
  Sex: Female

DRUGS (3)
  1. TYSABRI [Suspect]
     Indication: MULTIPLE SCLEROSIS
     Route: 042
     Dates: start: 20090102
  2. TYSABRI [Suspect]
     Route: 042
     Dates: start: 20071130, end: 20080407
  3. TYSABRI [Suspect]
     Route: 042
     Dates: start: 20080917, end: 20081022

REACTIONS (2)
  - MUSCLE SPASMS [None]
  - IRRITABILITY [None]
